FAERS Safety Report 4279177-7 (Version None)
Quarter: 2004Q1

REPORT INFORMATION
  Report Type: 
  Country: None (occurrence: None)
  Receive Date: 20040122
  Receipt Date: 20040109
  Transmission Date: 20041129
  Serious: Yes (Life-Threatening, Hospitalization, Other)
  Sender: FDA-Public Use
  Company Number: 2004002033

PATIENT
  Age: 57 Year
  Sex: Female

DRUGS (5)
  1. LUSTRAL (SERTRALINE) [Suspect]
     Indication: DEPRESSION
     Dosage: (DAILY), ORAL
     Route: 048
     Dates: start: 20010101, end: 20031230
  2. NIFEDIPINE [Suspect]
     Indication: HYPERTENSION
     Dosage: 60 MG (DAILYI), ORAL
     Route: 048
     Dates: end: 20031126
  3. BENDROFLUMETHIAZIDE (BENDROFLUMETHIAZIDE) [Suspect]
     Indication: HYPERTENSION
     Dosage: 2.5 MG (DAILY), ORAL
     Route: 048
     Dates: end: 20031126
  4. SIMVASTATIN [Concomitant]
  5. ACETYLSALICYLIC ACID SRT [Concomitant]

REACTIONS (8)
  - APHASIA [None]
  - BLOOD PRESSURE DECREASED [None]
  - ERYTHEMA [None]
  - LOSS OF CONSCIOUSNESS [None]
  - PRURITUS GENERALISED [None]
  - SWELLING FACE [None]
  - SWOLLEN TONGUE [None]
  - SYNCOPE VASOVAGAL [None]
